FAERS Safety Report 22217963 (Version 1)
Quarter: 2023Q2

REPORT INFORMATION
  Report Type: Spontaneous
  Country: GB (occurrence: GB)
  Receive Date: 20230417
  Receipt Date: 20230417
  Transmission Date: 20230722
  Serious: Yes (Other)
  Sender: FDA-Public Use
  Company Number: None

PATIENT
  Age: 65 Year
  Sex: Female
  Weight: 94 kg

DRUGS (6)
  1. ATORVASTATIN [Suspect]
     Active Substance: ATORVASTATIN
     Indication: Blood cholesterol increased
     Dates: start: 20230220
  2. AMLODIPINE [Concomitant]
     Active Substance: AMLODIPINE BESYLATE
     Indication: Hypertension
     Dosage: TO LOWER BLOOD PRESSURE
     Dates: start: 20181108
  3. BETAMETHASONE [Concomitant]
     Active Substance: BETAMETHASONE
     Indication: Eczema
     Dosage: APPLY ONCE DAILY SPARINGLY FOR SEVERE ECZEMA TWO
     Dates: start: 20220408
  4. HYDROCORTISONE [Concomitant]
     Active Substance: HYDROCORTISONE
     Dosage: APPLY SPARINGLY 2 TIMES DAILY FOR UP TO 2 WEEKS
     Dates: start: 20220408
  5. HYALURONATE SODIUM [Concomitant]
     Active Substance: HYALURONATE SODIUM
     Dosage: APPLY ONE DROP TO BOTH EYES
     Dates: start: 20221007
  6. TACROLIMUS [Concomitant]
     Active Substance: TACROLIMUS
     Dosage: APPLY THINLY TO FACIAL AREAS OF ECZEMA
     Dates: start: 20220408

REACTIONS (10)
  - Mouth ulceration [Recovered/Resolved]
  - Dental discomfort [Recovered/Resolved]
  - Myalgia [Recovered/Resolved]
  - Headache [Recovered/Resolved]
  - Feeling abnormal [Recovered/Resolved]
  - Pain [Recovered/Resolved]
  - Oral pain [Recovered/Resolved]
  - Gingival pain [Recovered/Resolved]
  - Toothache [Recovered/Resolved]
  - Gingival discolouration [Recovered/Resolved]

NARRATIVE: CASE EVENT DATE: 20230221
